FAERS Safety Report 8493384-9 (Version None)
Quarter: 2012Q3

REPORT INFORMATION
  Report Type: 
  Country: None (occurrence: None)
  Receive Date: 20120706
  Receipt Date: 20120703
  Transmission Date: 20120928
  Serious: Yes (Other)
  Sender: FDA-Public Use
  Company Number: PHEH2012US011449

PATIENT
  Sex: Female

DRUGS (1)
  1. LESCOL [Suspect]

REACTIONS (2)
  - FALL [None]
  - LOWER LIMB FRACTURE [None]
